FAERS Safety Report 19896086 (Version 4)
Quarter: 2021Q4

REPORT INFORMATION
  Report Type: Report from Study
  Country: US (occurrence: None)
  Receive Date: 20210929
  Receipt Date: 20211208
  Transmission Date: 20220303
  Serious: Yes (Hospitalization)
  Sender: FDA-Public Use
  Company Number: US-ROCHE-2667846

PATIENT
  Age: 53 Year
  Sex: Female
  Weight: 73.3 kg

DRUGS (17)
  1. COBIMETINIB [Suspect]
     Active Substance: COBIMETINIB
     Indication: Non-small cell lung cancer
     Dosage: DAY 1 AND DAY 2. ?ON 08/SEP/2020, SHE RESTARTED COBIMETINIB.
     Route: 048
     Dates: start: 20200811, end: 20200909
  2. AMLODIPINE [Concomitant]
     Active Substance: AMLODIPINE BESYLATE
     Indication: Hypertension
     Dates: start: 20200518, end: 20200825
  3. APIXABAN [Concomitant]
     Active Substance: APIXABAN
     Dates: start: 20200413
  4. BENZONATATE [Concomitant]
     Active Substance: BENZONATATE
     Indication: Cough
     Dates: start: 20200422
  5. CETIRIZINE HYDROCHLORIDE [Concomitant]
     Active Substance: CETIRIZINE HYDROCHLORIDE
     Indication: Rhinitis allergic
     Dates: start: 20200603
  6. DEXTROMETHORPHAN\GUAIFENESIN [Concomitant]
     Active Substance: DEXTROMETHORPHAN\GUAIFENESIN
     Indication: Cough
     Dates: start: 20200617
  7. ESTRADIOL [Concomitant]
     Active Substance: ESTRADIOL
     Indication: Dyspareunia
     Dosage: 0.1 MG/GRAM
     Dates: start: 20190109
  8. GABAPENTIN [Concomitant]
     Active Substance: GABAPENTIN
     Indication: Pain
     Dates: start: 20200711
  9. LIDOCAINE;PROCAINE [Concomitant]
     Dosage: 2.5-2.5
     Dates: start: 20200206
  10. NAPROXEN SODIUM [Concomitant]
     Active Substance: NAPROXEN SODIUM
     Indication: Hypertrophic osteoarthropathy
     Dates: start: 20191030
  11. OXYCODONE [Concomitant]
     Active Substance: OXYCODONE
     Indication: Pain
     Dates: start: 20200626
  12. PREDNISONE [Concomitant]
     Active Substance: PREDNISONE
     Dates: start: 20200723, end: 20200820
  13. PROCHLORPERAZINE [Concomitant]
     Active Substance: PROCHLORPERAZINE
     Indication: Nausea
     Dates: start: 20180808
  14. SULFAMETHOXAZOLE\TRIMETHOPRIM [Concomitant]
     Active Substance: SULFAMETHOXAZOLE\TRIMETHOPRIM
     Indication: Antifungal prophylaxis
     Dates: start: 20200721, end: 20200825
  15. TRIAMCINOLONE [Concomitant]
     Active Substance: TRIAMCINOLONE
     Indication: Drug reaction with eosinophilia and systemic symptoms
     Dates: start: 20200717
  16. TUMS [Concomitant]
     Active Substance: CALCIUM CARBONATE
     Indication: Gastrooesophageal reflux disease
     Dates: start: 20200805
  17. MEROPENEM [Concomitant]
     Active Substance: MEROPENEM
     Route: 042

REACTIONS (3)
  - Pleural effusion [Recovered/Resolved]
  - Sepsis [Recovered/Resolved]
  - Malignant pleural effusion [Recovered/Resolved]

NARRATIVE: CASE EVENT DATE: 20200818
